FAERS Safety Report 8924205 (Version 1)
Quarter: 2012Q4

REPORT INFORMATION
  Report Type: 
  Country: US (occurrence: US)
  Receive Date: 20121126
  Receipt Date: 20121126
  Transmission Date: 20130627
  Serious: Yes (Other)
  Sender: FDA-Public Use
  Company Number: US-GLAXOSMITHKLINE-A1002504A

PATIENT
  Age: 65 Year
  Sex: Male

DRUGS (5)
  1. ADVAIR [Suspect]
     Indication: CHRONIC OBSTRUCTIVE PULMONARY DISEASE
     Dosage: 1PUFF Twice per day
     Route: 055
     Dates: start: 20121115
  2. EFFEXOR [Concomitant]
  3. OMEPRAZOLE [Concomitant]
  4. REMERON [Concomitant]
  5. LEVOTHYROXINE [Concomitant]

REACTIONS (1)
  - Regurgitation [Unknown]
